FAERS Safety Report 9628060 (Version 1)
Quarter: 2013Q4

REPORT INFORMATION
  Report Type: Spontaneous
  Country: US (occurrence: US)
  Receive Date: 20131016
  Receipt Date: 20131016
  Transmission Date: 20140711
  Serious: No
  Sender: FDA-Public Use
  Company Number: US-B.I. PHARMACEUTICALS,INC./RIDGEFIELD-2013-BI-31481BP

PATIENT
  Age: 84 Year
  Sex: Male

DRUGS (2)
  1. ATROVENT INHALATION SOLUTION [Suspect]
     Indication: ASTHMA
     Dosage: 68 MCG
     Route: 055
  2. ALBUTEROL [Concomitant]
     Route: 055

REACTIONS (3)
  - Dyspnoea [Not Recovered/Not Resolved]
  - Back pain [Not Recovered/Not Resolved]
  - Off label use [Not Recovered/Not Resolved]
